FAERS Safety Report 10472619 (Version 3)
Quarter: 2014Q3

REPORT INFORMATION
  Report Type: Spontaneous
  Country: MY (occurrence: MY)
  Receive Date: 20140924
  Receipt Date: 20140930
  Transmission Date: 20150326
  Serious: Yes (Other)
  Sender: FDA-Public Use
  Company Number: MY-009507513-1405MYS011853

PATIENT
  Age: 47 Year
  Sex: Female

DRUGS (1)
  1. FOSAMAX PLUS D [Suspect]
     Active Substance: ALENDRONATE SODIUM\CHOLECALCIFEROL
     Indication: OSTEOPOROSIS
     Dosage: 70MG/5600 IU, ONCE WEEKLY;STRENGTH 70MG/5600 IU
     Route: 048
     Dates: start: 20121218

REACTIONS (2)
  - Femur fracture [Unknown]
  - Internal fixation of fracture [Unknown]

NARRATIVE: CASE EVENT DATE: 2014
